FAERS Safety Report 4695486-1 (Version None)
Quarter: 2005Q2

REPORT INFORMATION
  Report Type: 
  Country: None (occurrence: None)
  Receive Date: 20050608
  Receipt Date: 20050503
  Transmission Date: 20051028
  Serious: No
  Sender: FDA-Public Use
  Company Number: A03200501357

PATIENT
  Sex: Male

DRUGS (5)
  1. ELOXATIN [Suspect]
     Indication: NEOPLASM MALIGNANT
     Dosage: 250 MG Q3W - INTRAVENOUS NOS
     Route: 042
     Dates: start: 20050401, end: 20050401
  2. XELODA [Suspect]
     Indication: NEOPLASM MALIGNANT
     Dosage: ORAL
     Route: 048
  3. DOLASETRON MESILATE [Concomitant]
  4. DEXAMETHASONE [Concomitant]
  5. FAMOTIDINE [Concomitant]

REACTIONS (4)
  - CHEST PAIN [None]
  - CORNEAL DISORDER [None]
  - MUSCLE CONTRACTIONS INVOLUNTARY [None]
  - PAIN IN JAW [None]
